FAERS Safety Report 4928491-8 (Version None)
Quarter: 2006Q1

REPORT INFORMATION
  Report Type: 
  Country: None (occurrence: None)
  Receive Date: 20060127
  Receipt Date: 20051028
  Transmission Date: 20060701
  Serious: Yes (Other)
  Sender: FDA-Public Use
  Company Number: 2005149818

PATIENT
  Age: 83 Year
  Sex: Male
  Weight: 78.9259 kg

DRUGS (8)
  1. LYRICA [Suspect]
     Indication: POST HERPETIC NEURALGIA
     Dosage: 150 MG (75 MG, 2 IN 1 D), ORAL
     Route: 048
     Dates: start: 20051001
  2. VALSARTAN [Concomitant]
  3. GEMFIBROZIL [Concomitant]
  4. ISOSORBIDE (ISOSORBIDE) [Concomitant]
  5. AMLODIPINE BESYLATE [Concomitant]
  6. SIMVASTATIN [Concomitant]
  7. CLOPIDOGREL SULFATE (CLOPIDROGREL SULFATE) [Concomitant]
  8. ASPIRIN [Concomitant]

REACTIONS (5)
  - BALANCE DISORDER [None]
  - COGNITIVE DISORDER [None]
  - COORDINATION ABNORMAL [None]
  - GAIT DISTURBANCE [None]
  - SPEECH DISORDER [None]
